FAERS Safety Report 6763341-9 (Version None)
Quarter: 2010Q2

REPORT INFORMATION
  Report Type: 
  Country: None (occurrence: None)
  Receive Date: 20100610
  Receipt Date: 20100420
  Transmission Date: 20101027
  Serious: Yes (Hospitalization, Other)
  Sender: FDA-Public Use
  Company Number: US-BAYER-201012962NA

PATIENT
  Age: 21 Year
  Sex: Female
  Weight: 98 kg

DRUGS (4)
  1. OCELLA [Suspect]
     Indication: CONTRACEPTION
     Route: 048
     Dates: start: 20081007, end: 20091201
  2. YAZ [Suspect]
     Indication: CONTRACEPTION
     Route: 048
     Dates: start: 20081007, end: 20091201
  3. RITALIN [Concomitant]
     Route: 048
  4. ALBUTEROL SULFATE [Concomitant]
     Dosage: EVERY OTHER MONTH
     Route: 055

REACTIONS (8)
  - ABDOMINAL DISTENSION [None]
  - ABDOMINAL PAIN UPPER [None]
  - CHILLS [None]
  - CHOLECYSTITIS [None]
  - CHOLESTEROSIS [None]
  - DIZZINESS [None]
  - NAUSEA [None]
  - POLLAKIURIA [None]
